FAERS Safety Report 7098761-9 (Version None)
Quarter: 2010Q4

REPORT INFORMATION
  Report Type: 
  Country: None (occurrence: None)
  Receive Date: 20101112
  Receipt Date: 20080530
  Transmission Date: 20110411
  Serious: No
  Sender: FDA-Public Use
  Company Number: US-KINGPHARMUSA00001-K200800620

PATIENT
  Sex: Female
  Weight: 50.794 kg

DRUGS (2)
  1. SKELAXIN [Suspect]
     Indication: PAIN
     Dosage: 800 MG 3-4 TIMES PER DAY
     Route: 048
     Dates: start: 20080529
  2. CAPSAICIN [Concomitant]
     Indication: MUSCULOSKELETAL PAIN
     Route: 061

REACTIONS (8)
  - COUGH [None]
  - DISCOMFORT [None]
  - INSOMNIA [None]
  - IRRITABILITY [None]
  - NERVOUSNESS [None]
  - NEURALGIA [None]
  - PAIN [None]
  - PSYCHOMOTOR HYPERACTIVITY [None]
